FAERS Safety Report 19203832 (Version 3)
Quarter: 2021Q2

REPORT INFORMATION
  Report Type: Other
  Country: US (occurrence: US)
  Receive Date: 20210501
  Receipt Date: 20210613
  Transmission Date: 20210717
  Serious: Yes (Death, Hospitalization)
  Sender: FDA-Public Use
  Company Number: US-ROCHE-2818359

PATIENT
  Age: 43 Year
  Sex: Male
  Weight: 79.9 kg

DRUGS (2)
  1. OCREVUS [Suspect]
     Active Substance: OCRELIZUMAB
     Route: 042
  2. OCREVUS [Suspect]
     Active Substance: OCRELIZUMAB
     Indication: RELAPSING MULTIPLE SCLEROSIS
     Dosage: DATE OF TREATMENT: 11/SEP/2020
     Route: 042
     Dates: start: 20200827

REACTIONS (6)
  - Sepsis [Fatal]
  - Weight decreased [Fatal]
  - Urinary tract infection [Fatal]
  - Decubitus ulcer [Unknown]
  - Wound [Fatal]
  - COVID-19 pneumonia [Unknown]

NARRATIVE: CASE EVENT DATE: 20201001
